FAERS Safety Report 15340019 (Version 1)
Quarter: 2018Q3

REPORT INFORMATION
  Report Type: Spontaneous
  Country: ES (occurrence: ES)
  Receive Date: 20180831
  Receipt Date: 20180831
  Transmission Date: 20181010
  Serious: Yes (Other)
  Sender: FDA-Public Use
  Company Number: ES-LPDUSPRD-20181583

PATIENT
  Age: 87 Year
  Sex: Male
  Weight: 60.4 kg

DRUGS (1)
  1. FERINJECT [Suspect]
     Active Substance: FERRIC CARBOXYMALTOSE
     Dosage: 500 MG,1 TOTAL
     Route: 041
     Dates: start: 20180730, end: 20180730

REACTIONS (3)
  - Infusion related reaction [Unknown]
  - Muscle spasms [Unknown]
  - Chills [Unknown]

NARRATIVE: CASE EVENT DATE: 20180730
